FAERS Safety Report 8462967-4 (Version None)
Quarter: 2012Q2

REPORT INFORMATION
  Report Type: 
  Country: None (occurrence: None)
  Receive Date: 20120625
  Receipt Date: 20120615
  Transmission Date: 20120825
  Serious: Yes (Hospitalization)
  Sender: FDA-Public Use
  Company Number: AR-GLAXOSMITHKLINE-A0980487A

PATIENT
  Sex: Male

DRUGS (3)
  1. SYMBICORT [Concomitant]
     Indication: ASTHMA
  2. FLUTICASONE PROPIONATE/SALMETEROL [Suspect]
     Indication: ASTHMA
     Dosage: 500MCG TWICE PER DAY
     Route: 055
     Dates: start: 20120201
  3. FLUTICASONE PROPIONATE/SALMETEROL [Concomitant]
     Dates: end: 20120201

REACTIONS (5)
  - BLOOD TEST ABNORMAL [None]
  - CYTOMEGALOVIRUS INFECTION [None]
  - DRUG INEFFECTIVE [None]
  - PYREXIA [None]
  - PRODUCT QUALITY ISSUE [None]
